FAERS Safety Report 12725320 (Version 1)
Quarter: 2016Q3

REPORT INFORMATION
  Report Type: Spontaneous
  Country: GB (occurrence: US)
  Receive Date: 20160908
  Receipt Date: 20160908
  Transmission Date: 20161109
  Serious: Yes (Hospitalization, Disabling, Other)
  Sender: FDA-Public Use
  Company Number: None

PATIENT
  Age: 50 Year
  Sex: Female
  Weight: 78 kg

DRUGS (1)
  1. MIRENA [Suspect]
     Active Substance: LEVONORGESTREL
     Dates: start: 20151125, end: 20160811

REACTIONS (10)
  - Anxiety [None]
  - Arthralgia [None]
  - Renal impairment [None]
  - Pain [None]
  - Insomnia [None]
  - Furuncle [None]
  - Weight increased [None]
  - Oedema peripheral [None]
  - Malaise [None]
  - Cyst [None]

NARRATIVE: CASE EVENT DATE: 20151125
